FAERS Safety Report 15964232 (Version 1)
Quarter: 2019Q1

REPORT INFORMATION
  Report Type: Spontaneous
  Country: FR (occurrence: FR)
  Receive Date: 20190214
  Receipt Date: 20190214
  Transmission Date: 20190417
  Serious: Yes (Hospitalization)
  Sender: FDA-Public Use
  Company Number: FR-TEVA-2019-FR-1011134

PATIENT
  Age: 84 Year
  Sex: Female

DRUGS (10)
  1. OROCAL D3, COMPRIM? ? SUCER [Concomitant]
     Active Substance: CALCIUM CARBONATE\CHOLECALCIFEROL
  2. FUROSEMIDE. [Suspect]
     Active Substance: FUROSEMIDE
     Indication: HYPERTENSION
     Dosage: 40 MILLIGRAM DAILY;
     Route: 048
  3. DIFFU K [Concomitant]
     Active Substance: POTASSIUM CHLORIDE
  4. CELIPROLOL [Suspect]
     Active Substance: CELIPROLOL
     Indication: HYPERTENSION
     Dosage: 50 MILLIGRAM DAILY;
     Route: 048
     Dates: start: 2018, end: 20190116
  5. ELIQUIS [Concomitant]
     Active Substance: APIXABAN
  6. NOVONORM 0,5 MG, COMPRIM? [Concomitant]
     Active Substance: REPAGLINIDE
  7. ZANIDIP 10 MG, COMPRIM? PELLICUL? S?CABLE [Concomitant]
  8. SEROPLEX 5 MG, COMPRIM? PELLICUL? [Concomitant]
     Active Substance: ESCITALOPRAM OXALATE
  9. BROMAZEPAM [Concomitant]
     Active Substance: BROMAZEPAM
  10. FOSAMAX 70 MG, COMPRIM? [Concomitant]

REACTIONS (2)
  - Bradycardia [Recovering/Resolving]
  - Hypokalaemia [Recovering/Resolving]

NARRATIVE: CASE EVENT DATE: 20190115
